FAERS Safety Report 17206795 (Version 1)
Quarter: 2019Q4

REPORT INFORMATION
  Report Type: Spontaneous
  Country: SE (occurrence: SE)
  Receive Date: 20191227
  Receipt Date: 20191227
  Transmission Date: 20200122
  Serious: Yes (Hospitalization)
  Sender: FDA-Public Use
  Company Number: SE-TEVA-2019-SE-1157213

PATIENT
  Sex: Female

DRUGS (7)
  1. PROPAVAN [Suspect]
     Active Substance: PROPIOMAZINE
     Dosage: 4 ST
     Route: 048
     Dates: start: 20181208, end: 20181208
  2. PARACETAMOL [Suspect]
     Active Substance: ACETAMINOPHEN
     Dosage: 1 TABLE
     Route: 048
     Dates: start: 20181208, end: 20181208
  3. IPREN [Suspect]
     Active Substance: IBUPROFEN
     Dosage: 1 TABLE
     Route: 048
     Dates: start: 20181208, end: 20181208
  4. PARAFLEX [Suspect]
     Active Substance: CHLORZOXAZONE
     Dosage: 5 ST
     Route: 048
     Dates: start: 20181208, end: 20181208
  5. NAPROXEN. [Suspect]
     Active Substance: NAPROXEN
     Dosage: UNCLEAR AMOUNT
     Route: 048
     Dates: start: 20181208, end: 20181208
  6. QUETIAPINE ACCORD [Suspect]
     Active Substance: QUETIAPINE
     Route: 048
     Dates: start: 20181208, end: 20181208
  7. THERALEN [Suspect]
     Active Substance: TRIMEPRAZINE
     Dosage: 40 MG
     Route: 048

REACTIONS (2)
  - Fatigue [Unknown]
  - Intentional overdose [Unknown]

NARRATIVE: CASE EVENT DATE: 20181208
